FAERS Safety Report 4769886-5 (Version None)
Quarter: 2005Q3

REPORT INFORMATION
  Report Type: 
  Country: None (occurrence: None)
  Receive Date: 20050915
  Receipt Date: 20050815
  Transmission Date: 20060218
  Serious: Yes (Hospitalization, Disabling)
  Sender: FDA-Public Use
  Company Number: 2005UW12195

PATIENT
  Age: 31260 Day
  Sex: Female
  Weight: 50.9 kg

DRUGS (3)
  1. SEROQUEL [Suspect]
     Indication: DEMENTIA
     Route: 048
  2. SEROQUEL [Suspect]
     Route: 048
     Dates: start: 20050622
  3. SEROQUEL [Suspect]
     Route: 048
     Dates: start: 20050608, end: 20050622

REACTIONS (3)
  - FALL [None]
  - HIP FRACTURE [None]
  - ORTHOSTATIC HYPOTENSION [None]
